FAERS Safety Report 21488044 (Version 1)
Quarter: 2022Q4

REPORT INFORMATION
  Report Type: Spontaneous
  Country: US (occurrence: US)
  Receive Date: 20221020
  Receipt Date: 20221020
  Transmission Date: 20230113
  Serious: No
  Sender: FDA-Public Use
  Company Number: US-ALKERMES INC.-ALK-2022-004738

PATIENT
  Age: 43 Year
  Sex: Female

DRUGS (4)
  1. LYBALVI [Suspect]
     Active Substance: OLANZAPINE\SAMIDORPHAN L-MALATE
     Indication: Product used for unknown indication
     Dosage: 5/10 MILLIGRAM
     Route: 065
  2. LUVOX [LEVOFLOXACIN HEMIHYDRATE] [Concomitant]
     Indication: Product used for unknown indication
     Dosage: 200 MILLIGRAM
  3. LUVOX [LEVOFLOXACIN HEMIHYDRATE] [Concomitant]
     Dosage: 300 MILLIGRAM
     Route: 065
  4. GUANFACINE [Concomitant]
     Active Substance: GUANFACINE
     Indication: Product used for unknown indication
     Dosage: 1 MILLIGRAM
     Route: 065

REACTIONS (2)
  - Pain in extremity [Unknown]
  - Generalised oedema [Unknown]

NARRATIVE: CASE EVENT DATE: 20220901
